FAERS Safety Report 21488990 (Version 1)
Quarter: 2022Q4

REPORT INFORMATION
  Report Type: Spontaneous
  Country: US (occurrence: US)
  Receive Date: 20221021
  Receipt Date: 20221021
  Transmission Date: 20230113
  Serious: Yes (Other)
  Sender: FDA-Public Use
  Company Number: US-drreddys-LIT/USA/22/0156044

PATIENT
  Sex: Male

DRUGS (12)
  1. DOCETAXEL [Suspect]
     Active Substance: DOCETAXEL
     Indication: Hormone-refractory prostate cancer
  2. DOCETAXEL [Suspect]
     Active Substance: DOCETAXEL
     Indication: Prostate cancer metastatic
  3. DOCETAXEL [Suspect]
     Active Substance: DOCETAXEL
     Indication: Metastases to liver
  4. BICALUTAMIDE [Suspect]
     Active Substance: BICALUTAMIDE
     Indication: Hormone-refractory prostate cancer
  5. BICALUTAMIDE [Suspect]
     Active Substance: BICALUTAMIDE
     Indication: Prostate cancer metastatic
  6. BICALUTAMIDE [Suspect]
     Active Substance: BICALUTAMIDE
     Indication: Metastases to liver
  7. LEUPROLIDE ACETATE [Suspect]
     Active Substance: LEUPROLIDE ACETATE
     Indication: Hormone-refractory prostate cancer
  8. LEUPROLIDE ACETATE [Suspect]
     Active Substance: LEUPROLIDE ACETATE
     Indication: Prostate cancer metastatic
  9. LEUPROLIDE ACETATE [Suspect]
     Active Substance: LEUPROLIDE ACETATE
     Indication: Metastases to liver
  10. CARBOPLATIN [Suspect]
     Active Substance: CARBOPLATIN
     Indication: Hormone-refractory prostate cancer
  11. CARBOPLATIN [Suspect]
     Active Substance: CARBOPLATIN
     Indication: Prostate cancer metastatic
  12. CARBOPLATIN [Suspect]
     Active Substance: CARBOPLATIN
     Indication: Metastases to liver

REACTIONS (4)
  - Hormone-refractory prostate cancer [Unknown]
  - Prostate cancer metastatic [Unknown]
  - Metastases to liver [Unknown]
  - Disease progression [Unknown]
